FAERS Safety Report 21625950 (Version 1)
Quarter: 2022Q4

REPORT INFORMATION
  Report Type: Report from Study
  Country: US (occurrence: US)
  Receive Date: 20221122
  Receipt Date: 20221122
  Transmission Date: 20230112
  Serious: Yes (Other)
  Sender: FDA-Public Use
  Company Number: US-ABBVIE-4207414

PATIENT
  Age: 43 Year
  Sex: Female

DRUGS (2)
  1. SKYRIZI [Suspect]
     Active Substance: RISANKIZUMAB-RZAA
     Indication: Psoriasis
     Dosage: FORM STRENGTH:150 MILLIGRAM
     Route: 058
     Dates: end: 20220913
  2. SKYRIZI [Suspect]
     Active Substance: RISANKIZUMAB-RZAA
     Dosage: FORM STRENGTH:150 MILLIGRAM, FIRST ADMIN DATE 09 OCT 2022
     Route: 058

REACTIONS (3)
  - Gallbladder operation [Unknown]
  - Colitis [Unknown]
  - Influenza [Unknown]

NARRATIVE: CASE EVENT DATE: 20220913
